FAERS Safety Report 6211364-0 (Version None)
Quarter: 2009Q2

REPORT INFORMATION
  Report Type: 
  Country: None (occurrence: None)
  Receive Date: 20090528
  Receipt Date: 20090519
  Transmission Date: 20091009
  Serious: Yes (Hospitalization, Other)
  Sender: FDA-Public Use
  Company Number: 2009JP000992

PATIENT
  Age: 48 Year
  Sex: Male

DRUGS (8)
  1. PROGRAF [Suspect]
     Indication: RENAL TRANSPLANT
  2. BASILIXIMAB(BASILIXIMAB) FORMULATION UNKNOWN [Suspect]
     Indication: RENAL TRANSPLANT
  3. MYCOPHENOLATE MOFETIL [Suspect]
     Indication: RENAL TRANSPLANT
  4. STEROID(STEROID) FORMULATION UNKNOWN [Suspect]
     Indication: RENAL TRANSPLANT
  5. GANCICLOVIR (GANCICLOVIR) FORMULATION UNKNOWN [Concomitant]
  6. AMPHOTERICIN B FORMULATION UNKNOWN [Concomitant]
  7. FLUCONAZOLE (FLUCONAZOLE) FORMULATION UNKNOWN [Concomitant]
  8. ANTIFUNGALS FORMULATION UNKNOWN [Concomitant]

REACTIONS (6)
  - CYTOMEGALOVIRUS CHORIORETINITIS [None]
  - CYTOMEGALOVIRUS VIRAEMIA [None]
  - MENINGITIS CRYPTOCOCCAL [None]
  - NOCARDIOSIS [None]
  - UPPER RESPIRATORY TRACT INFLAMMATION [None]
  - URINARY TRACT INFECTION [None]
